FAERS Safety Report 7998977-0 (Version None)
Quarter: 2011Q4

REPORT INFORMATION
  Report Type: 
  Country: None (occurrence: None)
  Receive Date: 20111221
  Receipt Date: 20111215
  Transmission Date: 20120403
  Serious: Yes (Other)
  Sender: FDA-Public Use
  Company Number: US-ABBOTT-11P-163-0883680-00

PATIENT
  Sex: Female

DRUGS (2)
  1. DEPAKOTE [Suspect]
     Indication: EPILEPSY
  2. UNKNOWN MEDICATION [Concomitant]
     Indication: DEPRESSION

REACTIONS (6)
  - INFERTILITY FEMALE [None]
  - ANXIETY [None]
  - POLYCYSTIC OVARIES [None]
  - INJURY [None]
  - DEPRESSION [None]
  - EMOTIONAL DISTRESS [None]
